FAERS Safety Report 21423314 (Version 1)
Quarter: 2022Q4

REPORT INFORMATION
  Report Type: Spontaneous
  Country: US (occurrence: US)
  Receive Date: 20221007
  Receipt Date: 20221007
  Transmission Date: 20230112
  Serious: Yes (Hospitalization, Other)
  Sender: FDA-Public Use
  Company Number: US-GSK-US2022140702

PATIENT

DRUGS (4)
  1. TRELEGY ELLIPTA [Suspect]
     Active Substance: FLUTICASONE FUROATE\UMECLIDINIUM BROMIDE\VILANTEROL TRIFENATATE
     Indication: Chronic obstructive pulmonary disease
     Dosage: UNK, 100 MCG
     Dates: start: 20200101
  2. PRAZITONE [Concomitant]
     Indication: Product used for unknown indication
     Dosage: UNK
  3. DONEPEZIL [Concomitant]
     Active Substance: DONEPEZIL
     Indication: Amnesia
     Dosage: UNK
  4. TAMSULOSIN [Concomitant]
     Active Substance: TAMSULOSIN
     Indication: Product used for unknown indication
     Dosage: UNK

REACTIONS (3)
  - Fall [Not Recovered/Not Resolved]
  - Rotator cuff syndrome [Unknown]
  - Renal cancer [Unknown]

NARRATIVE: CASE EVENT DATE: 20220809
